FAERS Safety Report 5071767-7 (Version None)
Quarter: 2006Q3

REPORT INFORMATION
  Report Type: 
  Country: None (occurrence: None)
  Receive Date: 20060801
  Receipt Date: 20060714
  Transmission Date: 20061208
  Serious: Yes (Death, Life-Threatening, Hospitalization, Other)
  Sender: FDA-Public Use
  Company Number: JP200603004036

PATIENT
  Age: 77 Year
  Sex: Male
  Weight: 39.9 kg

DRUGS (6)
  1. GEMZAR [Suspect]
     Indication: PANCREATIC CARCINOMA STAGE IV
     Dosage: 1200 MG, OTHER, INTRAVENOUS
     Route: 042
     Dates: start: 20060222, end: 20060222
  2. OPSO (MORPHINE HYDROCHLORIDE) [Concomitant]
  3. DUROTEP (FENTANYL) [Concomitant]
  4. DIFLUCAN [Concomitant]
  5. LANSOPRAZOLE [Concomitant]
  6. BETAMETHASONE [Concomitant]

REACTIONS (14)
  - ACUTE RESPIRATORY DISTRESS SYNDROME [None]
  - BONE MARROW FAILURE [None]
  - CARDIOMEGALY [None]
  - DECREASED APPETITE [None]
  - DEHYDRATION [None]
  - GENERALISED OEDEMA [None]
  - HYPOALBUMINAEMIA [None]
  - MALAISE [None]
  - PNEUMONIA [None]
  - PULMONARY CONGESTION [None]
  - RESPIRATORY FAILURE [None]
  - SHOCK [None]
  - SYSTEMIC INFLAMMATORY RESPONSE SYNDROME [None]
  - VOMITING [None]
